FAERS Safety Report 25128189 (Version 1)
Quarter: 2025Q1

REPORT INFORMATION
  Report Type: Spontaneous
  Country: CZ (occurrence: CZ)
  Receive Date: 20250327
  Receipt Date: 20250327
  Transmission Date: 20250408
  Serious: Yes (Disabling, Other)
  Sender: EMD SERONO INC
  Company Number: None

PATIENT
  Age: 40 Year
  Sex: Female
  Weight: 65 kg

DRUGS (1)
  1. MAVENCLAD [Suspect]
     Active Substance: CLADRIBINE
     Indication: Multiple sclerosis

REACTIONS (4)
  - Pain [Unknown]
  - Hyperthyroidism [Unknown]
  - Malaise [Unknown]
  - Generalised oedema [Unknown]

NARRATIVE: CASE EVENT DATE: 20250107
